FAERS Safety Report 9384818 (Version 1)
Quarter: 2013Q3

REPORT INFORMATION
  Report Type: Spontaneous
  Country: US (occurrence: US)
  Receive Date: 20130705
  Receipt Date: 20130705
  Transmission Date: 20140515
  Serious: No
  Sender: FDA-Public Use
  Company Number: US-PFIZER INC-2013196710

PATIENT
  Sex: Male

DRUGS (2)
  1. LEVOTHYROXINE SODIUM [Suspect]
     Dosage: UNK
  2. SYNTHROID [Suspect]
     Dosage: UNK

REACTIONS (3)
  - Constipation [Unknown]
  - Headache [Unknown]
  - Drug ineffective [Unknown]
